FAERS Safety Report 23281652 (Version 1)
Quarter: 2023Q4

REPORT INFORMATION
  Report Type: Spontaneous
  Country: IT (occurrence: IT)
  Receive Date: 20231211
  Receipt Date: 20231211
  Transmission Date: 20240110
  Serious: Yes (Hospitalization)
  Sender: FDA-Public Use
  Company Number: None

PATIENT
  Age: 74 Year
  Sex: Female
  Weight: 54 kg

DRUGS (1)
  1. PACLITAXEL [Suspect]
     Active Substance: PACLITAXEL
     Indication: Ovarian cancer
     Dates: start: 20231107, end: 20231107

REACTIONS (3)
  - Flushing [Recovering/Resolving]
  - Hypertension [Recovering/Resolving]
  - Sacral pain [Recovering/Resolving]

NARRATIVE: CASE EVENT DATE: 20231107
